FAERS Safety Report 15120041 (Version 1)
Quarter: 2018Q3

REPORT INFORMATION
  Report Type: Spontaneous
  Country: US (occurrence: US)
  Receive Date: 20180709
  Receipt Date: 20180709
  Transmission Date: 20181010
  Serious: No
  Sender: FDA-Public Use
  Company Number: US-BAYER-2018-124778

PATIENT
  Age: 91 Year
  Sex: Female
  Weight: 53 kg

DRUGS (7)
  1. METHOTREXAT [METHOTREXATE] [Concomitant]
     Active Substance: METHOTREXATE
  2. LEVOTHYROXINE. [Concomitant]
     Active Substance: LEVOTHYROXINE
  3. MONTELUKAST [Concomitant]
     Active Substance: MONTELUKAST SODIUM
  4. MIRALAX [Suspect]
     Active Substance: POLYETHYLENE GLYCOL 3350
     Indication: CONSTIPATION
     Dosage: UNK
     Route: 048
  5. ROPINIROLE. [Concomitant]
     Active Substance: ROPINIROLE
  6. PRAVASTATIN. [Concomitant]
     Active Substance: PRAVASTATIN
  7. SUFENTANIL [Concomitant]
     Active Substance: SUFENTANIL

REACTIONS (3)
  - Product use in unapproved indication [Unknown]
  - Product prescribing issue [Unknown]
  - Off label use [Unknown]
